FAERS Safety Report 24403806 (Version 1)
Quarter: 2024Q4

REPORT INFORMATION
  Report Type: Report from Study
  Country: US (occurrence: US)
  Receive Date: 20241007
  Receipt Date: 20241007
  Transmission Date: 20250115
  Serious: Yes (Hospitalization, Other)
  Sender: TAKEDA
  Company Number: US-TAKEDA-2024TUS044501

PATIENT
  Age: 63 Year
  Sex: Male

DRUGS (1)
  1. VEDOLIZUMAB [Suspect]
     Active Substance: VEDOLIZUMAB
     Indication: Colitis ulcerative
     Dosage: 300 MILLIGRAM
     Route: 042
     Dates: start: 20240501

REACTIONS (8)
  - Large intestinal haemorrhage [Unknown]
  - Drug ineffective [Unknown]
  - Pruritus [Not Recovered/Not Resolved]
  - Peripheral swelling [Not Recovered/Not Resolved]
  - Musculoskeletal disorder [Recovered/Resolved]
  - Off label use [Recovered/Resolved]
  - Inappropriate schedule of product administration [Recovered/Resolved]
  - Induration [Recovered/Resolved]

NARRATIVE: CASE EVENT DATE: 20240501
